FAERS Safety Report 25255586 (Version 1)
Quarter: 2025Q2

REPORT INFORMATION
  Report Type: Spontaneous
  Country: BR (occurrence: BR)
  Receive Date: 20250430
  Receipt Date: 20250430
  Transmission Date: 20250716
  Serious: Yes (Hospitalization)
  Sender: SUNOVION
  Company Number: BR-SMPA-2025SPA005183

PATIENT

DRUGS (4)
  1. LURASIDONE HYDROCHLORIDE [Suspect]
     Active Substance: LURASIDONE HYDROCHLORIDE
     Indication: Product used for unknown indication
     Route: 048
     Dates: start: 20250422, end: 20250422
  2. CLONAZEPAM [Suspect]
     Active Substance: CLONAZEPAM
     Indication: Product used for unknown indication
     Route: 048
     Dates: start: 20250422, end: 20250422
  3. TRAZODONE HYDROCHLORIDE [Suspect]
     Active Substance: TRAZODONE HYDROCHLORIDE
     Indication: Product used for unknown indication
     Route: 048
     Dates: start: 20250422, end: 20250422
  4. ALPRAZOLAM [Suspect]
     Active Substance: ALPRAZOLAM
     Indication: Product used for unknown indication
     Route: 048
     Dates: start: 20250422, end: 20250422

REACTIONS (2)
  - Stupor [Unknown]
  - Suicide attempt [Unknown]

NARRATIVE: CASE EVENT DATE: 20250422
